FAERS Safety Report 4872744-9 (Version None)
Quarter: 2006Q1

REPORT INFORMATION
  Report Type: 
  Country: None (occurrence: None)
  Receive Date: 20060103
  Receipt Date: 20051219
  Transmission Date: 20060701
  Serious: No
  Sender: FDA-Public Use
  Company Number: US200512001118

PATIENT
  Age: 60 Year
  Sex: Male

DRUGS (7)
  1. ALIMTA [Suspect]
     Indication: LUNG CANCER METASTATIC
     Dosage: INTRAVENOUS
     Route: 042
     Dates: start: 20050817
  2. VITAMIN B12 (CYCANOCOBALAMIN) [Concomitant]
  3. FOLIC ACID (FOLIC ACID WITH VITAMINS-MINERALS) [Concomitant]
  4. DILANTIN [Concomitant]
  5. DECADRON [Concomitant]
  6. LOVENOX [Concomitant]
  7. KEPPRA /USA/(LEVETIRACETAM) [Concomitant]

REACTIONS (4)
  - ALOPECIA [None]
  - BLOOD PRESSURE DECREASED [None]
  - FATIGUE [None]
  - HEART RATE IRREGULAR [None]
